FAERS Safety Report 7820525-6 (Version None)
Quarter: 2011Q4

REPORT INFORMATION
  Report Type: 
  Country: None (occurrence: None)
  Receive Date: 20111018
  Receipt Date: 20111006
  Transmission Date: 20120403
  Serious: Yes (Hospitalization)
  Sender: FDA-Public Use
  Company Number: PHHY2011JP89033

PATIENT
  Sex: Male
  Weight: 49 kg

DRUGS (6)
  1. SYMMETREL [Concomitant]
     Dosage: 150 MG, UNK
     Route: 048
     Dates: start: 20090625
  2. PERSANTIN [Concomitant]
     Indication: HYPERTENSION
     Dosage: 150 MG, UNK
     Route: 048
     Dates: start: 20090625
  3. DIOVAN HCT [Suspect]
     Indication: HYPERTENSION
     Dosage: 1 DF, QD
     Route: 048
     Dates: start: 20091013, end: 20091028
  4. MADOPAR [Concomitant]
     Dosage: 3 DF, UNK
     Route: 048
     Dates: start: 20090625
  5. SENNOSIDE [Concomitant]
     Dosage: 36 MG, UNK
     Route: 048
     Dates: start: 20090625
  6. TAMSULOSIN HCL [Concomitant]
     Dosage: 0.2 MG, UNK
     Route: 048
     Dates: start: 20090625

REACTIONS (3)
  - FALL [None]
  - BLOOD PRESSURE FLUCTUATION [None]
  - FRACTURE [None]
